FAERS Safety Report 8764374 (Version 1)
Quarter: 2012Q4

REPORT INFORMATION
  Report Type: 
  Country: GB (occurrence: GB)
  Receive Date: 20120829
  Receipt Date: 20120829
  Transmission Date: 20130627
  Serious: Yes (Hospitalization)
  Sender: FDA-Public Use
  Company Number: PHHY2012GB072650

PATIENT
  Age: 65 Year
  Sex: Male

DRUGS (5)
  1. GLICLAZIDE [Suspect]
     Indication: TYPE 2 DIABETES MELLITUS
     Dosage: 80 mg
     Dates: end: 20111201
  2. METFORMIN [Suspect]
     Indication: TYPE 2 DIABETES MELLITUS
     Dosage: 2000 mg
     Dates: end: 20111201
  3. SAXAGLIPTIN [Suspect]
     Indication: TYPE 2 DIABETES MELLITUS
     Dates: start: 20071027
  4. ASPIRIN [Concomitant]
  5. RAMIPRIL [Concomitant]

REACTIONS (9)
  - Gastroenteritis [Not Recovered/Not Resolved]
  - General physical health deterioration [Recovered/Resolved]
  - Incontinence [Unknown]
  - Hypotension [Unknown]
  - Fall [Unknown]
  - Constipation [Recovered/Resolved]
  - Hypoglycaemia [Recovered/Resolved]
  - Asthenia [Unknown]
  - Vomiting [Recovered/Resolved]
